FAERS Safety Report 13610251 (Version 1)
Quarter: 2017Q2

REPORT INFORMATION
  Report Type: Spontaneous
  Country: FR (occurrence: FR)
  Receive Date: 20170605
  Receipt Date: 20170605
  Transmission Date: 20170830
  Serious: Yes (Hospitalization)
  Sender: FDA-Public Use
  Company Number: FR-ACCORD-052125

PATIENT
  Age: 16 Year
  Sex: Female

DRUGS (9)
  1. FOLINIC ACID [Concomitant]
     Active Substance: LEUCOVORIN
  2. ETOPOSIDE. [Concomitant]
     Active Substance: ETOPOSIDE
  3. HYDROXYZINE [Concomitant]
     Active Substance: HYDROXYZINE HYDROCHLORIDE
  4. ONDANSETRON ACCORD [Suspect]
     Active Substance: ONDANSETRON
     Indication: NAUSEA
     Dosage: STRENGTH: 2 MG/ML
     Route: 042
     Dates: start: 20170403, end: 20170428
  5. UTROGESTAN [Concomitant]
     Active Substance: PROGESTERONE
  6. ZOPHREN [Suspect]
     Active Substance: ONDANSETRON
     Indication: NAUSEA
     Route: 048
     Dates: start: 20170422, end: 20170423
  7. METHOTREXATE. [Concomitant]
     Active Substance: METHOTREXATE
     Dosage: 12 G/M2
     Route: 042
     Dates: start: 20170403
  8. IFOSFAMIDE. [Concomitant]
     Active Substance: IFOSFAMIDE
  9. PLITICAN [Concomitant]
     Active Substance: ALIZAPRIDE HYDROCHLORIDE
     Route: 042

REACTIONS (1)
  - Muscle tightness [Recovered/Resolved]

NARRATIVE: CASE EVENT DATE: 20170417
